FAERS Safety Report 15978506 (Version 1)
Quarter: 2019Q1

REPORT INFORMATION
  Report Type: Spontaneous
  Country: RO (occurrence: RO)
  Receive Date: 20190219
  Receipt Date: 20190219
  Transmission Date: 20190418
  Serious: Yes (Other)
  Sender: FDA-Public Use
  Company Number: RO-ROCHE-2266450

PATIENT
  Age: 67 Year
  Sex: Male

DRUGS (1)
  1. MABTHERA [Suspect]
     Active Substance: RITUXIMAB
     Indication: B-CELL LYMPHOMA
     Route: 058
     Dates: start: 201809

REACTIONS (3)
  - Confusional state [Unknown]
  - Lymphoma [Unknown]
  - Vertigo [Unknown]

NARRATIVE: CASE EVENT DATE: 201812
